FAERS Safety Report 7520846-0 (Version None)
Quarter: 2011Q2

REPORT INFORMATION
  Report Type: 
  Country: None (occurrence: None)
  Receive Date: 20110603
  Receipt Date: 20100823
  Transmission Date: 20111010
  Serious: Yes (Hospitalization, Other)
  Sender: FDA-Public Use
  Company Number: US-BAYER-201024513NA

PATIENT
  Age: 19 Year
  Sex: Female
  Weight: 70.455 kg

DRUGS (7)
  1. YASMIN [Suspect]
     Indication: MENSTRUAL DISORDER
     Route: 048
     Dates: start: 20051115, end: 20070930
  2. YASMIN [Suspect]
  3. YAZ [Suspect]
     Indication: CONTRACEPTION
     Route: 048
     Dates: start: 20071109, end: 20090731
  4. YAZ [Suspect]
     Indication: MENSTRUAL DISORDER
  5. YASMIN [Suspect]
  6. YAZ [Suspect]
  7. IBUPROFEN [Concomitant]

REACTIONS (6)
  - WEIGHT DECREASED [None]
  - GALLBLADDER CHOLESTEROLOSIS [None]
  - VOMITING [None]
  - ABDOMINAL PAIN [None]
  - CHOLELITHIASIS [None]
  - CHOLECYSTITIS CHRONIC [None]
